FAERS Safety Report 19042626 (Version 2)
Quarter: 2021Q2

REPORT INFORMATION
  Report Type: Report from Study
  Country: US (occurrence: US)
  Receive Date: 20210322
  Receipt Date: 20210520
  Transmission Date: 20210717
  Serious: Yes (Other)
  Sender: FDA-Public Use
  Company Number: NVSC2021US056268

PATIENT
  Age: 65 Year
  Sex: Female

DRUGS (2)
  1. ENTRESTO [Suspect]
     Active Substance: SACUBITRIL\VALSARTAN
     Route: 048
  2. ENTRESTO [Suspect]
     Active Substance: SACUBITRIL\VALSARTAN
     Indication: PRODUCT USED FOR UNKNOWN INDICATION
     Dosage: UNK UNK, BID
     Route: 048

REACTIONS (13)
  - Throat clearing [Unknown]
  - Cardiac disorder [Unknown]
  - Myofascial pain syndrome [Unknown]
  - Rheumatoid arthritis [Unknown]
  - Systemic lupus erythematosus [Unknown]
  - Hypoacusis [Unknown]
  - Fatigue [Unknown]
  - Rhinorrhoea [Unknown]
  - Stress [Unknown]
  - Illness [Unknown]
  - Arthralgia [Unknown]
  - Pneumonia [Unknown]
  - Tachypnoea [Unknown]
